FAERS Safety Report 9184272 (Version 1)
Quarter: 2012Q4

REPORT INFORMATION
  Report Type: 
  Country: US (occurrence: US)
  Receive Date: 20121031
  Receipt Date: 20121031
  Transmission Date: 20130627
  Serious: No
  Sender: FDA-Public Use
  Company Number: US-009507513-1210USA005656

PATIENT
  Age: 54 None
  Sex: Male
  Weight: 97.51 kg

DRUGS (6)
  1. VICTRELIS [Suspect]
     Dosage: 800 mg, tid
     Route: 048
  2. PEGINTRON [Suspect]
  3. RIBAVIRIN [Suspect]
  4. ZOLPIDEM TARTRATE [Concomitant]
  5. FLUOXETINE [Concomitant]
  6. IBUPROFEN [Concomitant]

REACTIONS (8)
  - Injection site reaction [Unknown]
  - Injection site erythema [Unknown]
  - Injection site pruritus [Unknown]
  - Fatigue [Unknown]
  - Rash [Unknown]
  - Rash [Unknown]
  - Fatigue [Unknown]
  - Dry skin [Unknown]
